FAERS Safety Report 13519597 (Version 4)
Quarter: 2017Q3

REPORT INFORMATION
  Report Type: Spontaneous
  Country: US (occurrence: US)
  Receive Date: 20170505
  Receipt Date: 20170719
  Transmission Date: 20171127
  Serious: Yes (Other)
  Sender: FDA-Public Use
  Company Number: US-009507513-1704USA013541

PATIENT
  Age: 64 Year
  Sex: Male
  Weight: 89.8 kg

DRUGS (3)
  1. ISONIAZID. [Suspect]
     Active Substance: ISONIAZID
     Dosage: 300 MG, QD
     Route: 048
     Dates: start: 20170222, end: 20170523
  2. TICE BCG [Suspect]
     Active Substance: BACILLUS CALMETTE-GUERIN SUBSTRAIN TICE LIVE ANTIGEN
     Indication: BLADDER CANCER
     Dosage: 50 MG, ONCE A WEEK FOR THREE WEEKS
     Dates: start: 20141215, end: 20170123
  3. RIFAMPIN. [Suspect]
     Active Substance: RIFAMPIN
     Dosage: 300 MG, BID
     Route: 048
     Dates: start: 201703, end: 20170523

REACTIONS (26)
  - Extrapulmonary tuberculosis [Recovered/Resolved]
  - Renal pain [Recovered/Resolved]
  - Intervertebral disc degeneration [Unknown]
  - Decreased appetite [Recovered/Resolved]
  - Dyspepsia [Recovered/Resolved]
  - Lymphadenitis [Recovering/Resolving]
  - Hyperhidrosis [Unknown]
  - Enterococcal infection [Recovered/Resolved]
  - Erectile dysfunction [Unknown]
  - Mycobacterium tuberculosis complex test positive [Recovered/Resolved]
  - Rash [Recovering/Resolving]
  - Penile abscess [Unknown]
  - Hydronephrosis [Unknown]
  - Arthropathy [Unknown]
  - Injury [Unknown]
  - Postoperative wound infection [Recovered/Resolved]
  - Urinary retention [Recovered/Resolved]
  - Granuloma [Unknown]
  - Weight decreased [Unknown]
  - Pruritus [Recovering/Resolving]
  - Escherichia infection [Recovered/Resolved]
  - Influenza like illness [Recovered/Resolved]
  - Bronchitis [Unknown]
  - Soft tissue necrosis [Unknown]
  - Genital lesion [Recovered/Resolved]
  - Penile swelling [Recovering/Resolving]

NARRATIVE: CASE EVENT DATE: 2017
